FAERS Safety Report 8378628-6 (Version None)
Quarter: 2012Q2

REPORT INFORMATION
  Report Type: 
  Country: None (occurrence: None)
  Receive Date: 20120522
  Receipt Date: 20120328
  Transmission Date: 20120825
  Serious: No
  Sender: FDA-Public Use
  Company Number: US-ASTRAZENECA-2012SE20842

PATIENT
  Age: 80 Year
  Sex: Male

DRUGS (6)
  1. BRILINTA [Suspect]
     Indication: ACUTE CORONARY SYNDROME
     Route: 048
     Dates: start: 20120126, end: 20120201
  2. METFORMIN HCL [Concomitant]
  3. PRILOSEC OTC [Suspect]
     Route: 048
  4. PRILOSEC [Suspect]
     Route: 048
  5. ASPIRIN [Concomitant]
  6. ANTI ANXIETY DRUG [Concomitant]

REACTIONS (1)
  - DYSPNOEA [None]
